FAERS Safety Report 21305527 (Version 1)
Quarter: 2022Q3

REPORT INFORMATION
  Report Type: Spontaneous
  Country: US (occurrence: US)
  Receive Date: 20220908
  Receipt Date: 20220908
  Transmission Date: 20221027
  Serious: Yes (Hospitalization, Other)
  Sender: FDA-Public Use
  Company Number: US-CADILA HEALTHCARE LIMITED-US-ZYDUS-082144

PATIENT

DRUGS (1)
  1. BOSENTAN [Suspect]
     Active Substance: BOSENTAN
     Indication: Pulmonary arterial hypertension
     Dosage: 62.5 MILLIGRAM, BID
     Dates: start: 20190618

REACTIONS (4)
  - Bacteraemia [Unknown]
  - Gastrointestinal haemorrhage [Unknown]
  - Glioblastoma [Unknown]
  - Hospice care [Unknown]

NARRATIVE: CASE EVENT DATE: 20220101
